FAERS Safety Report 11458114 (Version 4)
Quarter: 2015Q4

REPORT INFORMATION
  Report Type: Report from Study
  Country: ZA (occurrence: ZA)
  Receive Date: 20150904
  Receipt Date: 20151120
  Transmission Date: 20160304
  Serious: Yes (Death, Other)
  Sender: FDA-Public Use
  Company Number: ZA-JNJFOC-20150901549

PATIENT
  Age: 20 Year
  Sex: Female
  Weight: 36 kg

DRUGS (23)
  1. PHOLCODINE [Concomitant]
     Active Substance: PHOLCODINE
     Route: 065
     Dates: start: 20150701
  2. PYRIDOXINE [Concomitant]
     Active Substance: PYRIDOXINE
     Route: 065
     Dates: start: 20150702
  3. ETHIONAMIDE [Concomitant]
     Active Substance: ETHIONAMIDE
     Route: 065
     Dates: start: 20150129, end: 20150702
  4. SIRTURO [Suspect]
     Active Substance: BEDAQUILINE FUMARATE
     Indication: PULMONARY TUBERCULOSIS
     Route: 048
     Dates: start: 20150709, end: 20150729
  5. FLEET-ENEMA [Concomitant]
     Route: 065
     Dates: start: 20150819, end: 20150819
  6. TERIZIDONE [Concomitant]
     Active Substance: TERIZIDONE
     Route: 065
     Dates: start: 20150129, end: 20150702
  7. SLOW MAG [Concomitant]
     Active Substance: MAGNESIUM CHLORIDE
     Route: 065
     Dates: start: 20150704
  8. AUGMENTIN [Concomitant]
     Active Substance: AMOXICILLIN\CLAVULANATE POTASSIUM
     Route: 065
     Dates: start: 20150702
  9. ETHAMBUTOL [Concomitant]
     Active Substance: ETHAMBUTOL HYDROCHLORIDE
     Route: 065
     Dates: start: 20150129, end: 20150702
  10. CAPREOMYCIN [Concomitant]
     Active Substance: CAPREOMYCIN
     Route: 065
     Dates: start: 20150129, end: 20150526
  11. LEVOFLOXACIN. [Concomitant]
     Active Substance: LEVOFLOXACIN
     Route: 065
     Dates: start: 20150624, end: 20150702
  12. MAXOLON [Concomitant]
     Active Substance: METOCLOPRAMIDE HYDROCHLORIDE
     Route: 065
     Dates: start: 20150807
  13. AMINOSALICYLATE SODIUM [Concomitant]
     Active Substance: AMINOSALICYLATE SODIUM
     Route: 065
     Dates: start: 20150129, end: 20150702
  14. SIRTURO [Suspect]
     Active Substance: BEDAQUILINE FUMARATE
     Indication: PULMONARY TUBERCULOSIS
     Route: 048
     Dates: start: 20150730, end: 20150828
  15. MYDRIACYL [Concomitant]
     Active Substance: TROPICAMIDE
     Route: 065
     Dates: start: 20150707, end: 20150707
  16. CLOFAZIMINE [Concomitant]
     Active Substance: CLOFAZIMINE
     Route: 065
     Dates: start: 20150129, end: 20150702
  17. SOFLAX [Concomitant]
     Active Substance: DOCUSATE
     Route: 065
     Dates: start: 20150820
  18. PARACETAMOL [Concomitant]
     Active Substance: ACETAMINOPHEN
     Route: 065
     Dates: start: 20150716
  19. LANSOPRAZOLE. [Concomitant]
     Active Substance: LANSOPRAZOLE
     Route: 065
     Dates: start: 20150811
  20. MOXIFLOXACIN. [Concomitant]
     Active Substance: MOXIFLOXACIN
     Route: 065
     Dates: start: 20150129, end: 20150410
  21. PYRAZINAMIDE. [Concomitant]
     Active Substance: PYRAZINAMIDE
     Route: 065
     Dates: start: 20150129, end: 20150702
  22. ISONIAZID. [Concomitant]
     Active Substance: ISONIAZID
     Route: 065
     Dates: start: 20150129, end: 20150526
  23. LINEZOLID. [Suspect]
     Active Substance: LINEZOLID
     Indication: PULMONARY TUBERCULOSIS
     Route: 048
     Dates: start: 20150709, end: 20150828

REACTIONS (1)
  - Upper gastrointestinal haemorrhage [Fatal]

NARRATIVE: CASE EVENT DATE: 20150827
